FAERS Safety Report 4597305-0 (Version None)
Quarter: 2005Q1

REPORT INFORMATION
  Report Type: 
  Country: None (occurrence: None)
  Receive Date: 20050225
  Receipt Date: 20050225
  Transmission Date: 20050727
  Serious: No
  Sender: FDA-Public Use
  Company Number: None

PATIENT
  Age: 47 Year
  Sex: Female
  Weight: 58.514 kg

DRUGS (4)
  1. FLUOROURACIL [Suspect]
     Indication: RECTAL CANCER
     Dosage: 380 MG OVER 24 HRS CONTINUOUS IVFOR 6 WEEKS
     Route: 042
     Dates: start: 20040922
  2. RESTORIL [Concomitant]
  3. TYLENOL (CAPLET) [Concomitant]
  4. PERCOCET [Concomitant]

REACTIONS (1)
  - BLOOD GLUCOSE INCREASED [None]
